FAERS Safety Report 11491332 (Version 1)
Quarter: 2015Q3

REPORT INFORMATION
  Report Type: Spontaneous
  Country: DK (occurrence: DK)
  Receive Date: 20150910
  Receipt Date: 20150910
  Transmission Date: 20151125
  Serious: Yes (Hospitalization)
  Sender: FDA-Public Use
  Company Number: DK-SA-2015SA135380

PATIENT
  Age: 75 Year
  Sex: Male

DRUGS (2)
  1. HJERTEMAGNYL [Suspect]
     Active Substance: ASPIRIN\MAGNESIUM OXIDE
     Indication: ANTICOAGULANT THERAPY
     Route: 065
     Dates: start: 20120306
  2. CLOPIDOGREL BISULFATE. [Suspect]
     Active Substance: CLOPIDOGREL BISULFATE
     Indication: ANTICOAGULANT THERAPY
     Route: 065
     Dates: start: 20120306

REACTIONS (9)
  - Cardiac arrest [Recovered/Resolved]
  - Haematemesis [Unknown]
  - Haematoma [Unknown]
  - Dizziness [Unknown]
  - Gastric haemorrhage [Unknown]
  - Ileostomy [Not Recovered/Not Resolved]
  - Epigastric discomfort [Unknown]
  - Large intestinal haemorrhage [Recovered/Resolved with Sequelae]
  - Gastric ulcer [Recovered/Resolved]

NARRATIVE: CASE EVENT DATE: 20120314
